FAERS Safety Report 5332695-2 (Version None)
Quarter: 2007Q2

REPORT INFORMATION
  Report Type: 
  Country: None (occurrence: None)
  Receive Date: 20070521
  Receipt Date: 20070509
  Transmission Date: 20071010
  Serious: Yes (Other)
  Sender: FDA-Public Use
  Company Number: GXKR2007AU04182

PATIENT
  Age: 76 Year

DRUGS (2)
  1. SIMVASTATIN [Suspect]
     Dosage: SEE IMAGE
  2. SIMVASTATIN [Suspect]
     Dosage: 80 MG

REACTIONS (5)
  - BIOPSY MUSCLE ABNORMAL [None]
  - GENERAL PHYSICAL HEALTH DETERIORATION [None]
  - MUSCULAR WEAKNESS [None]
  - MYOPATHY [None]
  - RENAL FAILURE ACUTE [None]
